FAERS Safety Report 16058000 (Version 1)
Quarter: 2019Q1

REPORT INFORMATION
  Report Type: Report from Study
  Country: CA (occurrence: CA)
  Receive Date: 20190311
  Receipt Date: 20190311
  Transmission Date: 20190418
  Serious: Yes (Hospitalization)
  Sender: FDA-Public Use
  Company Number: CA-JNJFOC-20190207091

PATIENT
  Age: 42 Year
  Sex: Female

DRUGS (1)
  1. REMICADE [Suspect]
     Active Substance: INFLIXIMAB
     Indication: RHEUMATOID ARTHRITIS
     Route: 042
     Dates: start: 20070123, end: 20190304

REACTIONS (5)
  - Lupus-like syndrome [Unknown]
  - Epstein-Barr virus infection [Unknown]
  - Diabetic ketoacidosis [Unknown]
  - Cardiac dysfunction [Unknown]
  - Hepatic failure [Unknown]

NARRATIVE: CASE EVENT DATE: 20190206
